FAERS Safety Report 23697164 (Version 1)
Quarter: 2024Q2

REPORT INFORMATION
  Report Type: Spontaneous
  Country: CZ (occurrence: CZ)
  Receive Date: 20240402
  Receipt Date: 20240402
  Transmission Date: 20240715
  Serious: Yes (Other)
  Sender: FDA-Public Use
  Company Number: CZ-002147023-NVSC2020CZ094013

PATIENT
  Age: 41 Year
  Sex: Male
  Weight: 51 kg

DRUGS (5)
  1. LEVETIRACETAM [Suspect]
     Active Substance: LEVETIRACETAM
     Indication: Oedema
     Dosage: UNK
     Route: 065
     Dates: start: 201807
  2. LEVETIRACETAM [Suspect]
     Active Substance: LEVETIRACETAM
     Indication: Epilepsy
  3. DEXAMETHASONE [Suspect]
     Active Substance: DEXAMETHASONE
     Indication: Oedema
     Dosage: UNK
     Route: 065
     Dates: start: 201807
  4. VALPROATE [Suspect]
     Active Substance: VALPROIC ACID
     Indication: Oedema
     Dosage: UNK
     Route: 065
     Dates: start: 201807
  5. VALPROATE [Suspect]
     Active Substance: VALPROIC ACID
     Indication: Epilepsy

REACTIONS (1)
  - Epilepsy [Unknown]
